FAERS Safety Report 13163850 (Version 2)
Quarter: 2017Q1

REPORT INFORMATION
  Report Type: Spontaneous
  Country: JP (occurrence: JP)
  Receive Date: 20170130
  Receipt Date: 20170307
  Transmission Date: 20170428
  Serious: Yes (Hospitalization, Other)
  Sender: FDA-Public Use
  Company Number: JP-BAYER-2017-011960

PATIENT
  Age: 33 Year
  Sex: Female

DRUGS (3)
  1. WARFARIN POTASSIUM [Concomitant]
     Active Substance: WARFARIN POTASSIUM
     Indication: THROMBOSIS PROPHYLAXIS
     Dosage: DAILY DOSE 5 MG
     Route: 048
  2. PREDNISOLONE. [Concomitant]
     Active Substance: PREDNISOLONE
  3. ACETYLSALICYLIC ACID({=100 MG) [Suspect]
     Active Substance: ASPIRIN
     Indication: TAKAYASU^S ARTERITIS
     Dosage: DAILY DOSE 100 MG
     Route: 048

REACTIONS (5)
  - Maternal exposure before pregnancy [Recovered/Resolved]
  - Thrombocytopenia [None]
  - Amaurosis fugax [Recovering/Resolving]
  - Premature delivery [Recovered/Resolved]
  - Uterine hypertonus [Recovered/Resolved]
